FAERS Safety Report 5123186-2 (Version None)
Quarter: 2006Q4

REPORT INFORMATION
  Report Type: 
  Country: None (occurrence: None)
  Receive Date: 20061005
  Receipt Date: 20060922
  Transmission Date: 20070319
  Serious: Yes (Death, Hospitalization)
  Sender: FDA-Public Use
  Company Number: 2006094960

PATIENT
  Age: 70 Year
  Sex: Female

DRUGS (9)
  1. SUTENT [Suspect]
     Indication: RENAL CELL CARCINOMA STAGE UNSPECIFIED
     Dosage: 50 MG (50 MG, DAILY FOR 28 DAYS), ORAL
     Route: 048
     Dates: start: 20060711, end: 20060720
  2. OXYCONTIN [Concomitant]
  3. ENBREL [Concomitant]
  4. NORVASC [Concomitant]
  5. MULTIVITAMIN [Concomitant]
  6. CALCIUM WITH VITAMIN D [Concomitant]
  7. EFFEXOR [Concomitant]
  8. LIPITOR [Concomitant]
  9. LASIX [Concomitant]

REACTIONS (3)
  - DEHYDRATION [None]
  - FATIGUE [None]
  - HEPATOTOXICITY [None]
